FAERS Safety Report 8049320-2 (Version None)
Quarter: 2012Q1

REPORT INFORMATION
  Report Type: 
  Country: None (occurrence: None)
  Receive Date: 20120117
  Receipt Date: 20120106
  Transmission Date: 20120608
  Serious: Yes (Other)
  Sender: FDA-Public Use
  Company Number: GB-JNJFOC-20120102592

PATIENT
  Age: 32 Year
  Sex: Female

DRUGS (3)
  1. CLOZARIL [Suspect]
     Indication: PRODUCT USED FOR UNKNOWN INDICATION
  2. ACETAMINOPHEN [Suspect]
     Indication: PRODUCT USED FOR UNKNOWN INDICATION
     Route: 065
  3. ACETAMINOPHEN [Suspect]
     Route: 065

REACTIONS (1)
  - OVERDOSE [None]
